FAERS Safety Report 16464392 (Version 1)
Quarter: 2019Q2

REPORT INFORMATION
  Report Type: Report from Study
  Country: CA (occurrence: CA)
  Receive Date: 20190621
  Receipt Date: 20190621
  Transmission Date: 20190711
  Serious: Yes (Death, Hospitalization, Other)
  Sender: FDA-Public Use
  Company Number: CA-BRISTOL-MYERS SQUIBB COMPANY-BMS-2018-013858

PATIENT
  Age: 82 Year
  Sex: Male

DRUGS (1)
  1. ABATACEPT [Suspect]
     Active Substance: ABATACEPT
     Indication: RHEUMATOID ARTHRITIS
     Dosage: 750 MG, Q4WK
     Route: 042
     Dates: start: 20090423, end: 20190417

REACTIONS (4)
  - Hospitalisation [Not Recovered/Not Resolved]
  - Death [Fatal]
  - Nasopharyngitis [Recovering/Resolving]
  - Diarrhoea [Unknown]

NARRATIVE: CASE EVENT DATE: 20180212
